FAERS Safety Report 14018560 (Version 1)
Quarter: 2017Q3

REPORT INFORMATION
  Report Type: Report from Study
  Country: US (occurrence: US)
  Receive Date: 20170928
  Receipt Date: 20170928
  Transmission Date: 20171128
  Serious: Yes (Other)
  Sender: FDA-Public Use
  Company Number: US-TORRENT-00003429

PATIENT
  Age: 37 Year
  Sex: Male

DRUGS (2)
  1. LAMOTRIGINE. [Suspect]
     Active Substance: LAMOTRIGINE
  2. ACETAZOLAMIDE. [Concomitant]
     Active Substance: ACETAZOLAMIDE

REACTIONS (10)
  - Vertigo [Unknown]
  - Fall [Unknown]
  - Confusional state [Unknown]
  - Balance disorder [Unknown]
  - Somnolence [Unknown]
  - Ammonia increased [Unknown]
  - Toxicity to various agents [Unknown]
  - Diplopia [Unknown]
  - Vision blurred [Unknown]
  - Nausea [Unknown]
